FAERS Safety Report 9727847 (Version 2)
Quarter: 2013Q4

REPORT INFORMATION
  Report Type: Spontaneous
  Country: HU (occurrence: HU)
  Receive Date: 20131204
  Receipt Date: 20131216
  Transmission Date: 20140711
  Serious: Yes (Hospitalization)
  Sender: FDA-Public Use
  Company Number: HU-BIOGENIDEC-2013BI114738

PATIENT
  Age: 41 Year
  Sex: Female

DRUGS (5)
  1. TYSABRI [Suspect]
     Indication: MULTIPLE SCLEROSIS
     Route: 042
     Dates: start: 20131024, end: 20131120
  2. BACLOFEN [Concomitant]
     Indication: MUSCLE RELAXANT THERAPY
  3. STIMULOTON [Concomitant]
  4. FRONTIN [Concomitant]
     Indication: DEPRESSION
  5. FRONTIN [Concomitant]
     Indication: DEPRESSION

REACTIONS (2)
  - Erythema [Recovered/Resolved]
  - Pruritus [Recovered/Resolved]
